FAERS Safety Report 5177438-0 (Version None)
Quarter: 2006Q4

REPORT INFORMATION
  Report Type: 
  Country: None (occurrence: None)
  Receive Date: 20061207
  Receipt Date: 20061129
  Transmission Date: 20070319
  Serious: Yes (Hospitalization)
  Sender: FDA-Public Use
  Company Number: 2006136502

PATIENT
  Age: 11 Year
  Sex: Male
  Weight: 63.0953 kg

DRUGS (6)
  1. ZIPRASIDONE HCL [Suspect]
     Indication: SCHIZOAFFECTIVE DISORDER
     Dosage: 120 MG
     Dates: start: 20040308
  2. TOPAMAX [Concomitant]
  3. DEPAKOTE [Concomitant]
  4. COGENTIN [Concomitant]
  5. PROPRANOLOL [Concomitant]
  6. KLONOPIN (CLONAPAM) [Concomitant]

REACTIONS (5)
  - AGGRESSION [None]
  - CONDITION AGGRAVATED [None]
  - IRRITABILITY [None]
  - PARANOIA [None]
  - PSYCHOTIC DISORDER [None]
